FAERS Safety Report 6791080-7 (Version None)
Quarter: 2010Q2

REPORT INFORMATION
  Report Type: 
  Country: None (occurrence: None)
  Receive Date: 20100624
  Receipt Date: 20100614
  Transmission Date: 20101027
  Serious: Yes (Death, Hospitalization)
  Sender: FDA-Public Use
  Company Number: US-ELI_LILLY_AND_COMPANY-US201003001034

PATIENT
  Sex: Male
  Weight: 58.503 kg

DRUGS (1)
  1. FORTEO [Suspect]
     Indication: OSTEOPOROSIS
     Dates: start: 20090109

REACTIONS (3)
  - MYOCARDIAL INFARCTION [None]
  - NEPHROPATHY [None]
  - NORMOCHROMIC NORMOCYTIC ANAEMIA [None]
